FAERS Safety Report 22237059 (Version 1)
Quarter: 2023Q2

REPORT INFORMATION
  Report Type: Spontaneous
  Country: US (occurrence: None)
  Receive Date: 20230421
  Receipt Date: 20230421
  Transmission Date: 20230722
  Serious: No
  Sender: FDA-Public Use
  Company Number: US-ROCHE-3213220

PATIENT
  Sex: Male

DRUGS (1)
  1. ESBRIET [Suspect]
     Active Substance: PIRFENIDONE
     Indication: Idiopathic pulmonary fibrosis
     Dosage: 3 CAPSULES (801 MG) TWICE A DAY.
     Route: 048
     Dates: start: 20220308

REACTIONS (3)
  - Off label use [Unknown]
  - Product dose omission in error [Unknown]
  - No adverse event [Unknown]
